FAERS Safety Report 21444815 (Version 1)
Quarter: 2022Q4

REPORT INFORMATION
  Report Type: Spontaneous
  Country: US (occurrence: US)
  Receive Date: 20221012
  Receipt Date: 20221012
  Transmission Date: 20230112
  Serious: Yes (Other)
  Sender: FDA-Public Use
  Company Number: US-SANOFI-01310659

PATIENT
  Sex: Female

DRUGS (2)
  1. ZANTAC [Suspect]
     Active Substance: RANITIDINE HYDROCHLORIDE
     Dosage: UNK
  2. RANITIDINE HYDROCHLORIDE [Suspect]
     Active Substance: RANITIDINE HYDROCHLORIDE
     Dosage: UNK

REACTIONS (26)
  - Autoimmune haemolytic anaemia [Unknown]
  - Pneumonia [Unknown]
  - Productive cough [Unknown]
  - Blister [Unknown]
  - Skin exfoliation [Unknown]
  - Rash erythematous [Unknown]
  - Headache [Unknown]
  - Abdominal pain upper [Unknown]
  - Asthenia [Unknown]
  - Fatigue [Unknown]
  - Abdominal pain [Unknown]
  - Blood disorder [Unknown]
  - Chest pain [Unknown]
  - Back pain [Unknown]
  - Mental disorder [Unknown]
  - Nausea [Unknown]
  - Constipation [Unknown]
  - Pyrexia [Unknown]
  - Dyspnoea [Unknown]
  - Confusional state [Unknown]
  - Faeces pale [Unknown]
  - Visual impairment [Unknown]
  - Heart rate irregular [Unknown]
  - Hair disorder [Unknown]
  - Libido decreased [Unknown]
  - White blood cell count abnormal [Unknown]
